FAERS Safety Report 9547678 (Version 3)
Quarter: 2013Q3

REPORT INFORMATION
  Report Type: Report from Study
  Country: CA (occurrence: CA)
  Receive Date: 20130924
  Receipt Date: 20130927
  Transmission Date: 20140515
  Serious: Yes (Death)
  Sender: FDA-Public Use
  Company Number: CA-ROCHE-1244684

PATIENT
  Age: 53 Year
  Sex: Male
  Weight: 44.5 kg

DRUGS (8)
  1. AVASTIN [Suspect]
     Indication: COLON CANCER METASTATIC
     Route: 042
     Dates: start: 20130415, end: 20130828
  2. CISPLATIN [Suspect]
     Indication: COLON CANCER METASTATIC
     Route: 042
     Dates: end: 20130614
  3. ZOFRAN [Concomitant]
  4. INNOHEP [Concomitant]
  5. CALCIUM FOLINATE [Concomitant]
  6. 5-FLUOROURACIL [Concomitant]
  7. IRINOTECAN [Concomitant]
  8. DECADRON [Concomitant]

REACTIONS (6)
  - Disease progression [Fatal]
  - Drug ineffective [Unknown]
  - Proteinuria [Unknown]
  - Blood test abnormal [Unknown]
  - Lung disorder [Unknown]
  - Lung infection [Unknown]
